FAERS Safety Report 14345738 (Version 1)
Quarter: 2018Q1

REPORT INFORMATION
  Report Type: Spontaneous
  Country: None (occurrence: US)
  Receive Date: 20180102
  Receipt Date: 20180102
  Transmission Date: 20180509
  Serious: Yes (Hospitalization)
  Sender: FDA-Public Use
  Company Number: None

PATIENT
  Age: 35 Year
  Sex: Male
  Weight: 82 kg

DRUGS (1)
  1. KRATOM MITRAGYNA SPECIOSA [Suspect]
     Active Substance: MITRAGYNINE\HERBALS
     Indication: MUSCLE RELAXANT THERAPY
     Dates: start: 20171129, end: 20171212

REACTIONS (5)
  - Jaundice [None]
  - Pruritus [None]
  - Chromaturia [None]
  - Toxicity to various agents [None]
  - Liver injury [None]

NARRATIVE: CASE EVENT DATE: 20171218
